FAERS Safety Report 4944996-8 (Version None)
Quarter: 2006Q1

REPORT INFORMATION
  Report Type: 
  Country: None (occurrence: None)
  Receive Date: 20060117
  Receipt Date: 20050722
  Transmission Date: 20060701
  Serious: Yes (Other)
  Sender: FDA-Public Use
  Company Number: A03200502247

PATIENT
  Sex: Male

DRUGS (3)
  1. PLAVIX [Suspect]
     Dosage: 75 MG QD - ORAL
     Route: 048
     Dates: start: 20050101, end: 20050101
  2. STATIN [Concomitant]
  3. ANGIOTENSION CONVERTING ENZYME INHIBITOR [Concomitant]

REACTIONS (2)
  - ERYTHEMA MULTIFORME [None]
  - HYPERTENSION [None]
